FAERS Safety Report 23484443 (Version 1)
Quarter: 2024Q1

REPORT INFORMATION
  Report Type: Spontaneous
  Country: US (occurrence: US)
  Receive Date: 20240206
  Receipt Date: 20240206
  Transmission Date: 20240410
  Serious: Yes (Other)
  Sender: FDA-Public Use
  Company Number: US-MLMSERVICE-20240119-4786858-1

PATIENT
  Age: 4 Decade
  Sex: Male

DRUGS (7)
  1. FELBATOL [Suspect]
     Active Substance: FELBAMATE
     Indication: Epilepsy
     Dosage: 1500 MILLIGRAM, 3 TIMES A DAY(HIGH-DOSE (62?MG/KG/DAY))
     Route: 065
  2. FELBATOL [Suspect]
     Active Substance: FELBAMATE
     Dosage: UNK,HIGH DOSE
     Route: 065
  3. LACOSAMIDE [Suspect]
     Active Substance: LACOSAMIDE
     Indication: Epilepsy
     Dosage: UNK, HIGH-DOSE
     Route: 065
     Dates: end: 2021
  4. RUFINAMIDE [Suspect]
     Active Substance: RUFINAMIDE
     Indication: Epilepsy
     Dosage: UNK, HIGH-DOSE
     Route: 065
  5. RUFINAMIDE [Suspect]
     Active Substance: RUFINAMIDE
     Dosage: UNK, TITRATING UP
     Route: 065
     Dates: end: 2021
  6. TOPIRAMATE [Suspect]
     Active Substance: TOPIRAMATE
     Indication: Epilepsy
     Dosage: UNK, HIGH-DOSE
     Route: 065
  7. ZONISAMIDE [Suspect]
     Active Substance: ZONISAMIDE
     Indication: Epilepsy
     Dosage: UNK, HIGH-DOSE
     Route: 065
     Dates: end: 2021

REACTIONS (1)
  - Nephrolithiasis [Unknown]
